FAERS Safety Report 11939469 (Version 7)
Quarter: 2016Q2

REPORT INFORMATION
  Report Type: Report from Study
  Country: DE (occurrence: DE)
  Receive Date: 20160122
  Receipt Date: 20160404
  Transmission Date: 20160815
  Serious: Yes (Hospitalization)
  Sender: FDA-Public Use
  Company Number: DE-AMGEN-DEUCT2016006336

PATIENT
  Age: 11 Year
  Sex: Male
  Weight: 46.5 kg

DRUGS (19)
  1. METHOTREXATE (METHOTREXATE SODIUM) [Concomitant]
     Active Substance: METHOTREXATE SODIUM
     Dosage: 10 MG, UNK
     Route: 037
     Dates: start: 20151222, end: 20151222
  2. VFEND [Concomitant]
     Active Substance: VORICONAZOLE
     Dosage: 180-385 MG
     Route: 048
     Dates: start: 20151216
  3. ZOFRAN [Concomitant]
     Active Substance: ONDANSETRON HYDROCHLORIDE
     Dosage: 8 MG, UNK
     Route: 048
     Dates: start: 20151217, end: 20151217
  4. DEXAMETHASONE. [Concomitant]
     Active Substance: DEXAMETHASONE
     Dosage: 7-14 G,UNK
     Dates: start: 20151223, end: 20151223
  5. ACICLOVIR [Concomitant]
     Active Substance: ACYCLOVIR
     Dosage: 200-400 MG
     Route: 048
     Dates: start: 20151216, end: 20160131
  6. LASIX [Concomitant]
     Active Substance: FUROSEMIDE
     Dosage: 10 MG, UNK
     Route: 042
     Dates: start: 20151222
  7. GENTAMYCIN                         /00047101/ [Concomitant]
     Active Substance: GENTAMICIN
     Dosage: 200 MG, UNK
     Route: 042
     Dates: start: 20151229, end: 20160117
  8. KALIUMCHLORID [Concomitant]
     Dosage: 600 MG, UNK
     Route: 048
     Dates: start: 20151216, end: 20151224
  9. IBUPROFEN. [Concomitant]
     Active Substance: IBUPROFEN
     Dosage: 400 MG, UNK
     Route: 048
     Dates: start: 20151217, end: 20151217
  10. DIAROENT                           /00577301/ [Concomitant]
     Dosage: 1 UNK, UNK
     Route: 048
     Dates: start: 20151216, end: 20160122
  11. MAGNESIUM [Concomitant]
     Active Substance: MAGNESIUM
     Dosage: 1 UNK, UNK
     Route: 048
     Dates: start: 20151221, end: 20160110
  12. CEFTAZIDIM [Concomitant]
     Active Substance: CEFTAZIDIME
     Dosage: 2 G, UNK
     Route: 042
     Dates: start: 20151227, end: 20160118
  13. OMEPRAZOL                          /00661201/ [Concomitant]
     Active Substance: OMEPRAZOLE
     Dosage: 20 MG, UNK
     Route: 048
     Dates: start: 20151217, end: 20160110
  14. COTRIM [Concomitant]
     Active Substance: SULFAMETHOXAZOLE\TRIMETHOPRIM
     Dosage: 80-160 MG
     Route: 048
     Dates: start: 20151204
  15. CALCIUM [Concomitant]
     Active Substance: CALCIUM
     Dosage: 600 MG, UNK
     Route: 048
     Dates: start: 20151216
  16. DECOSTRIOL [Concomitant]
     Active Substance: CALCITRIOL
     Dosage: 0.25 MUG, UNK
     Route: 048
     Dates: start: 20151217
  17. BLINATUMOMAB [Suspect]
     Active Substance: BLINATUMOMAB
     Indication: ACUTE LYMPHOCYTIC LEUKAEMIA
     Dosage: 15 MCG/M2, UNK
     Route: 042
     Dates: start: 20151223
  18. PARACETAMOL [Concomitant]
     Active Substance: ACETAMINOPHEN
     Dosage: 400-500 MG
     Route: 042
     Dates: start: 20151228
  19. NOVALGIN [Concomitant]
     Active Substance: METAMIZOLE SODIUM
     Dosage: 10 MG, UNK
     Route: 042
     Dates: start: 20151230, end: 20151230

REACTIONS (2)
  - Neutropenia [Not Recovered/Not Resolved]
  - Cytokine release syndrome [Recovered/Resolved]

NARRATIVE: CASE EVENT DATE: 20160115
